FAERS Safety Report 9178558 (Version 1)
Quarter: 2013Q1

REPORT INFORMATION
  Report Type: Spontaneous
  Country: US (occurrence: US)
  Receive Date: 20130321
  Receipt Date: 20130321
  Transmission Date: 20140127
  Serious: Yes (Other)
  Sender: FDA-Public Use
  Company Number: US-PFIZER INC-2013092306

PATIENT
  Age: 48 Year
  Sex: Female
  Weight: 58.96 kg

DRUGS (3)
  1. EFFEXOR XR [Suspect]
     Indication: MAJOR DEPRESSION
     Dosage: UNK
     Dates: end: 20130316
  2. SEROQUEL [Concomitant]
     Dosage: 400 MG, 1X/DAY
  3. WELLBUTRIN [Concomitant]
     Dosage: 300 MG, UNK

REACTIONS (3)
  - Amnesia [Unknown]
  - Malaise [Unknown]
  - Head discomfort [Unknown]
